FAERS Safety Report 16038843 (Version 1)
Quarter: 2019Q1

REPORT INFORMATION
  Report Type: Spontaneous
  Country: US (occurrence: US)
  Receive Date: 20190206
  Receipt Date: 20190206
  Transmission Date: 20190418
  Serious: Yes (Life-Threatening, Hospitalization)
  Sender: FDA-Public Use
  Company Number: None

PATIENT
  Age: 71 Year
  Sex: Male
  Weight: 79 kg

DRUGS (3)
  1. APIXABAN [Suspect]
     Active Substance: APIXABAN
     Indication: ATRIAL FIBRILLATION
     Route: 048
     Dates: start: 20170304
  2. APIXABAN [Suspect]
     Active Substance: APIXABAN
     Indication: MITRAL VALVE REPLACEMENT
     Route: 048
     Dates: start: 20170304
  3. IBUPROFEN. [Suspect]
     Active Substance: IBUPROFEN

REACTIONS (2)
  - Hypotension [None]
  - Gastrointestinal haemorrhage [None]

NARRATIVE: CASE EVENT DATE: 20181031
